FAERS Safety Report 9978727 (Version 1)
Quarter: 2014Q1

REPORT INFORMATION
  Report Type: Report from Study
  Country: US (occurrence: US)
  Receive Date: 20140306
  Receipt Date: 20140306
  Transmission Date: 20141002
  Serious: No
  Sender: FDA-Public Use
  Company Number: US-ABBVIE-13P-163-1170116-00

PATIENT
  Sex: Female
  Weight: 108.96 kg

DRUGS (4)
  1. HUMIRA [Suspect]
     Indication: RHEUMATOID ARTHRITIS
     Route: 058
     Dates: start: 20130702, end: 201310
  2. HUMIRA [Suspect]
     Dosage: TWO TO THREE INJECTIONS
     Route: 058
     Dates: start: 201310
  3. LEFLUNOMIDE [Concomitant]
     Indication: RHEUMATOID ARTHRITIS
     Dates: start: 20131112
  4. UNNAMED MEDICATION [Concomitant]
     Indication: RHEUMATOID ARTHRITIS
     Dates: start: 201310, end: 201310

REACTIONS (8)
  - Pain [Not Recovered/Not Resolved]
  - Gastritis [Unknown]
  - Injection site erythema [Not Recovered/Not Resolved]
  - Injection site pruritus [Not Recovered/Not Resolved]
  - Drug ineffective [Not Recovered/Not Resolved]
  - Injection site erythema [Not Recovered/Not Resolved]
  - Injection site pruritus [Unknown]
  - Abdominal pain upper [Unknown]
